FAERS Safety Report 12351148 (Version 1)
Quarter: 2016Q2

REPORT INFORMATION
  Report Type: Spontaneous
  Country: US (occurrence: US)
  Receive Date: 20160510
  Receipt Date: 20160510
  Transmission Date: 20160815
  Serious: No
  Sender: FDA-Public Use
  Company Number: US-009507513-1604USA016724

PATIENT
  Age: 34 Year
  Sex: Female
  Weight: 73.92 kg

DRUGS (1)
  1. IMPLANON [Suspect]
     Active Substance: ETONOGESTREL
     Indication: CONTRACEPTION
     Dosage: EVERY 3 YEARS, LEFT ARM IMPLANT
     Route: 059
     Dates: start: 20120515

REACTIONS (6)
  - Incorrect drug administration duration [Unknown]
  - Alopecia [Not Recovered/Not Resolved]
  - Menstruation irregular [Unknown]
  - Food allergy [Unknown]
  - Acne [Not Recovered/Not Resolved]
  - Implant site paraesthesia [Unknown]

NARRATIVE: CASE EVENT DATE: 201205
